FAERS Safety Report 17550338 (Version 1)
Quarter: 2020Q1

REPORT INFORMATION
  Report Type: Other
  Country: CA (occurrence: CA)
  Receive Date: 20200317
  Receipt Date: 20200317
  Transmission Date: 20200409
  Serious: Yes (Other)
  Sender: FDA-Public Use
  Company Number: CA-APOTEX-2020AP008512

PATIENT
  Sex: Female

DRUGS (1)
  1. ROSUVASTATIN. [Suspect]
     Active Substance: ROSUVASTATIN
     Indication: PRODUCT USED FOR UNKNOWN INDICATION
     Dosage: 10 MG, QD
     Route: 048

REACTIONS (8)
  - Cough [Unknown]
  - Pain [Unknown]
  - Pruritus [Unknown]
  - Food craving [Unknown]
  - Hunger [Unknown]
  - Dry mouth [Unknown]
  - Asthenia [Unknown]
  - Gait disturbance [Unknown]
